FAERS Safety Report 20807982 (Version 1)
Quarter: 2022Q2

REPORT INFORMATION
  Report Type: Spontaneous
  Country: US (occurrence: US)
  Receive Date: 20220510
  Receipt Date: 20220510
  Transmission Date: 20220720
  Serious: No
  Sender: FDA-Public Use
  Company Number: US-BAYER-2022A066679

PATIENT
  Age: 23 Year
  Sex: Female

DRUGS (2)
  1. MIRENA [Suspect]
     Active Substance: LEVONORGESTREL
     Indication: Endometrial neoplasm
     Dosage: 20?G/DAY
     Route: 015
     Dates: start: 20210915
  2. MIRENA [Suspect]
     Active Substance: LEVONORGESTREL
     Indication: Oligomenorrhoea

REACTIONS (3)
  - Device expulsion [Recovered/Resolved]
  - Off label use of device [None]
  - Device use issue [None]

NARRATIVE: CASE EVENT DATE: 20210915
